FAERS Safety Report 25879191 (Version 2)
Quarter: 2025Q4

REPORT INFORMATION
  Report Type: Report from Study
  Country: US (occurrence: US)
  Receive Date: 20251003
  Receipt Date: 20251017
  Transmission Date: 20260117
  Serious: Yes (Hospitalization)
  Sender: AVEO PHARMACEUTICALS
  Company Number: US-AVEO PHARMACEUTICALS, INC.-2025-AVEO-US000791

PATIENT
  Age: 65 Year
  Sex: Female
  Weight: 43.5 kg

DRUGS (32)
  1. TIVOZANIB [Suspect]
     Active Substance: TIVOZANIB
     Indication: Metastatic neoplasm
     Dosage: 0.89 MG
     Dates: start: 20250205, end: 20250921
  2. ATEZOLIZUMAB [Suspect]
     Active Substance: ATEZOLIZUMAB
     Indication: Metastatic neoplasm
     Dosage: 1680 MG, ON DAY 1 OF EVERY 28-DAY CYCLE
     Dates: start: 20250205, end: 20250915
  3. ONDANSETRON [Concomitant]
     Active Substance: ONDANSETRON
     Indication: Nausea
     Dosage: 4 MG, Q8H PRN
  4. LORAZEPAM [Concomitant]
     Active Substance: LORAZEPAM
     Indication: Anxiety
     Dosage: 1 MG, DAILY
     Dates: start: 20140916
  5. MIRALAX [Concomitant]
     Active Substance: POLYETHYLENE GLYCOL 3350
     Indication: Constipation
     Dosage: 17 G, DAILY, PRN
     Dates: start: 20240702
  6. LOPERAMIDE [Concomitant]
     Active Substance: LOPERAMIDE
     Indication: Diarrhoea
     Dosage: 2 MG, Q4H PRN
  7. AMBIEN [Concomitant]
     Active Substance: ZOLPIDEM TARTRATE
     Indication: Insomnia
     Dosage: 12.5 MG, QHS
  8. FAMOTIDINE [Concomitant]
     Active Substance: FAMOTIDINE
     Indication: Gastrooesophageal reflux disease
     Dosage: 40 MG, DAILY, ER
     Dates: start: 20250206
  9. SUCRALFATE [Concomitant]
     Active Substance: SUCRALFATE
     Indication: Gastrooesophageal reflux disease
     Dosage: 1 G, TID
     Dates: start: 2022
  10. FOLVITE [Concomitant]
     Active Substance: FOLIC ACID
     Indication: Anaemia
     Dosage: 400 UG, DAILY
     Dates: start: 2020
  11. VITAMIN B12 [Concomitant]
     Active Substance: CYANOCOBALAMIN
     Indication: Prophylaxis
     Dosage: 1000 UG, DAILY
     Dates: start: 2021
  12. CREON [Concomitant]
     Active Substance: PANCRELIPASE AMYLASE\PANCRELIPASE LIPASE\PANCRELIPASE PROTEASE
     Indication: Pancreatic failure
     Dosage: 36000 UNITS, 2 X CAPSULES TID
  13. VITAMIN D3 [Concomitant]
     Active Substance: CHOLECALCIFEROL
     Indication: Prophylaxis
     Dosage: 125 UG, DAILY
     Dates: start: 2021
  14. ATORVASTATIN [Concomitant]
     Active Substance: ATORVASTATIN
     Indication: Hyperlipidaemia
     Dosage: 20 MG, DAILY
     Dates: start: 20231120
  15. ACETAMINOPHEN [Concomitant]
     Active Substance: ACETAMINOPHEN
     Indication: Headache
     Dosage: 500 MG, 2 TABLETS Q8H PRN
  16. IMITREX [Concomitant]
     Active Substance: SUMATRIPTAN SUCCINATE
     Indication: Headache
     Dosage: 50 MG, PRN
  17. SIMETHICONE (DIMETHICONE) [Concomitant]
     Active Substance: DIMETHICONE
     Indication: Flatulence
     Dosage: 80 MG, BID
     Dates: start: 20250207
  18. DULOXETINE [Concomitant]
     Active Substance: DULOXETINE
     Indication: Anxiety
     Dosage: 30 MG, DAILY
     Dates: start: 20250304
  19. IPRATROPIUM [Concomitant]
     Active Substance: IPRATROPIUM
     Indication: Cough
     Dosage: 17 MCG/ACT, INTRANASAL, TWO PUFFS BID
  20. AMLODIPINE [Concomitant]
     Active Substance: AMLODIPINE BESYLATE
     Indication: Hypertension
     Dosage: 10 MG, DAILY
     Dates: start: 20250310
  21. CANNABIS SATIVA SUBSP. INDICA TOP [Concomitant]
     Active Substance: CANNABIS SATIVA SUBSP. INDICA TOP
     Indication: Anxiety
     Dosage: 2-3 TIMES PER WEEK PRN, MEDICAL
  22. LOSARTAN [Concomitant]
     Active Substance: LOSARTAN
     Indication: Hypertension
     Dosage: 50 MG, DAILY
     Dates: start: 20250429
  23. LIDOCAINE\PRILOCAINE [Concomitant]
     Active Substance: LIDOCAINE\PRILOCAINE
     Indication: Premedication
     Dosage: 1 APP, PRN
  24. OXYCODONE [Concomitant]
     Active Substance: OXYCODONE
     Indication: Back pain
     Dosage: 10 MG, Q4-6HR PRN
  25. OLANZAPINE [Concomitant]
     Active Substance: OLANZAPINE
     Indication: Decreased appetite
     Dosage: 2.5 MG, DAILY AT BEDTIME
     Dates: start: 20250915
  26. SODIUM CHLORIDE [Concomitant]
     Active Substance: SODIUM CHLORIDE
     Indication: Dehydration
     Dosage: 1 L, LX BOLUS
     Dates: start: 20250915, end: 20250915
  27. IBUPROFEN [Concomitant]
     Active Substance: IBUPROFEN
     Indication: Costochondritis
     Dosage: 400 MG, BID
     Dates: start: 20250915
  28. AMOXICILLIN AND CLAVULANATE POTASSIUM [Concomitant]
     Active Substance: AMOXICILLIN\CLAVULANATE POTASSIUM
     Indication: Pneumonia
     Dosage: 1 DOSAGE FORM, Q12H
     Dates: start: 20250909, end: 20250911
  29. AZITHROMYCIN [Concomitant]
     Active Substance: AZITHROMYCIN
     Indication: Pneumonia
     Dosage: 2 DOSAGE FORM, ONCE
     Dates: start: 20250909, end: 20250909
  30. AZITHROMYCIN [Concomitant]
     Active Substance: AZITHROMYCIN
     Dosage: 1 DOSAGE FORM, ONCE DAILY
     Dates: start: 20250910, end: 20250912
  31. CAMPHOR\PHENOL [Concomitant]
     Active Substance: CAMPHOR\PHENOL
     Indication: Lip infection
     Dosage: 1 APP, ORAL LABIA, TOPICAL, PRN
     Dates: start: 20250901, end: 20250908
  32. ABREVA [Concomitant]
     Active Substance: DOCOSANOL
     Indication: Lip infection
     Dosage: 1 APP, ORAL LABIA. TOPICAL, PRN
     Dates: start: 20250909, end: 20250911

REACTIONS (1)
  - Small intestinal obstruction [Recovered/Resolved]

NARRATIVE: CASE EVENT DATE: 20250921
